FAERS Safety Report 4442974-9 (Version None)
Quarter: 2004Q3

REPORT INFORMATION
  Report Type: 
  Country: None (occurrence: None)
  Receive Date: 20040728
  Receipt Date: 20040514
  Transmission Date: 20050211
  Serious: No
  Sender: FDA-Public Use
  Company Number: USA040567648

PATIENT
  Sex: Female

DRUGS (1)
  1. STRATTERA [Suspect]
     Dates: start: 20040401

REACTIONS (1)
  - AGITATION [None]
